FAERS Safety Report 20150839 (Version 3)
Quarter: 2022Q1

REPORT INFORMATION
  Report Type: Report from Study
  Country: DE (occurrence: DE)
  Receive Date: 20211206
  Receipt Date: 20220206
  Transmission Date: 20220423
  Serious: Yes (Hospitalization, Other)
  Sender: FDA-Public Use
  Company Number: DE-TAKEDA-2021TUS075432

PATIENT
  Age: 56 Year
  Weight: 74 kg

DRUGS (25)
  1. ANTIHEMOPHILIC FACTOR, PEGYLATED (MW 20000) HUMAN SEQUENCE RECOMBINANT [Suspect]
     Active Substance: ANTIHEMOPHILIC FACTOR, PEGYLATED (MW 20000) HUMAN SEQUENCE RECOMBINANT
     Indication: Prophylaxis
     Dosage: 3000 INTERNATIONAL UNIT
     Route: 042
     Dates: start: 20190107, end: 20211118
  2. ANTIHEMOPHILIC FACTOR, PEGYLATED (MW 20000) HUMAN SEQUENCE RECOMBINANT [Suspect]
     Active Substance: ANTIHEMOPHILIC FACTOR, PEGYLATED (MW 20000) HUMAN SEQUENCE RECOMBINANT
     Indication: Prophylaxis
     Dosage: 3000 INTERNATIONAL UNIT
     Route: 042
     Dates: start: 20190107, end: 20211118
  3. ANTIHEMOPHILIC FACTOR, PEGYLATED (MW 20000) HUMAN SEQUENCE RECOMBINANT [Suspect]
     Active Substance: ANTIHEMOPHILIC FACTOR, PEGYLATED (MW 20000) HUMAN SEQUENCE RECOMBINANT
     Indication: Prophylaxis
     Dosage: 3000 INTERNATIONAL UNIT
     Route: 042
     Dates: start: 20190107, end: 20211118
  4. METAMIZOLE [Concomitant]
     Active Substance: METAMIZOLE
     Indication: Femur fracture
     Dosage: UNK
     Route: 048
     Dates: start: 20171220, end: 20171222
  5. METAMIZOLE [Concomitant]
     Active Substance: METAMIZOLE
     Indication: Pulpitis dental
     Dosage: UNK
     Route: 048
     Dates: start: 20180623, end: 20180630
  6. ATRIPLA [Concomitant]
     Active Substance: EFAVIRENZ\EMTRICITABINE\TENOFOVIR DISOPROXIL FUMARATE
     Indication: HIV infection
     Dosage: 600 MILLIGRAM, QD
     Route: 048
  7. CHOLECALCIFEROL [Concomitant]
     Active Substance: CHOLECALCIFEROL
     Indication: Osteoporosis
     Dosage: 20000 INTERNATIONAL UNIT, 1/WEEK
     Route: 048
  8. ACTONEL [Concomitant]
     Active Substance: RISEDRONATE SODIUM
     Indication: Osteoporosis
     Dosage: 35 MILLIGRAM, 1/WEEK
     Route: 048
     Dates: end: 20191019
  9. IBUPROFEN [Concomitant]
     Active Substance: IBUPROFEN
     Indication: Tenosynovitis
     Dosage: 1800 MILLIGRAM, QD
     Route: 048
     Dates: start: 20150511, end: 20150530
  10. IBUPROFEN [Concomitant]
     Active Substance: IBUPROFEN
     Indication: Haemarthrosis
     Dosage: 800 MILLIGRAM
     Route: 048
     Dates: start: 20190104
  11. IBUPROFEN [Concomitant]
     Active Substance: IBUPROFEN
     Indication: Analgesic therapy
     Dosage: 600 MILLIGRAM, QD
     Route: 048
     Dates: start: 20211120, end: 20211227
  12. ENOXAPARIN SODIUM [Concomitant]
     Active Substance: ENOXAPARIN SODIUM
     Indication: Femur fracture
     Dosage: 20 MILLIGRAM, QD
     Route: 058
     Dates: start: 20171209, end: 20180116
  13. ENOXAPARIN SODIUM [Concomitant]
     Active Substance: ENOXAPARIN SODIUM
     Indication: Thrombosis prophylaxis
     Dosage: 0.4 MILLIGRAM, QD
     Route: 058
     Dates: start: 20191218, end: 20191222
  14. ENOXAPARIN SODIUM [Concomitant]
     Active Substance: ENOXAPARIN SODIUM
     Dosage: 0.2 MILLIGRAM, QD
     Route: 058
     Dates: start: 20200106, end: 20200109
  15. ENOXAPARIN SODIUM [Concomitant]
     Active Substance: ENOXAPARIN SODIUM
     Dosage: 0.4 MILLILITER
     Route: 058
     Dates: start: 20211120
  16. PANTOPRAZOLE SODIUM [Concomitant]
     Active Substance: PANTOPRAZOLE SODIUM
     Indication: Antacid therapy
     Dosage: 20 MILLIGRAM, QD
     Route: 048
     Dates: start: 20150511, end: 20150530
  17. ENOXAPARIN [Concomitant]
     Active Substance: ENOXAPARIN
     Indication: Thrombosis prophylaxis
     Dosage: 4000 INTERNATIONAL UNIT, QD
     Route: 058
     Dates: start: 20191224, end: 20200102
  18. TRANEXAMIC ACID [Concomitant]
     Active Substance: TRANEXAMIC ACID
     Indication: Colonoscopy
     Dosage: UNK
     Route: 065
     Dates: start: 20170717, end: 20170717
  19. TRANEXAMIC ACID [Concomitant]
     Active Substance: TRANEXAMIC ACID
     Indication: Tooth extraction
     Dosage: UNK
     Route: 048
     Dates: start: 20190102, end: 20190102
  20. POLYETHYLENE GLYCOLS [Concomitant]
     Active Substance: POLYETHYLENE GLYCOLS
     Indication: Antacid therapy
     Dosage: UNK UNK, QD
     Route: 048
     Dates: start: 20211120, end: 20211227
  21. FERROUS GLUCONATE [Concomitant]
     Active Substance: FERROUS GLUCONATE
     Indication: Iron deficiency
     Dosage: 1 DOSAGE FORM, QD
     Route: 048
     Dates: start: 20211120, end: 20211227
  22. POTASSIUM CHLORIDE [Concomitant]
     Active Substance: POTASSIUM CHLORIDE
     Indication: Prophylaxis
     Dosage: 1 DOSAGE FORM, QD
     Route: 048
     Dates: start: 20211120, end: 20211227
  23. VANCOMYCIN [Concomitant]
     Active Substance: VANCOMYCIN
     Indication: Antibiotic therapy
     Dosage: UNK
     Dates: start: 20211207, end: 20211229
  24. AMOXICILLIN\CLAVULANATE POTASSIUM [Concomitant]
     Active Substance: AMOXICILLIN\CLAVULANATE POTASSIUM
     Indication: Antibiotic therapy
     Dosage: 1 DOSAGE FORM, QD
     Route: 048
     Dates: start: 20211228, end: 20220103
  25. Covid-19 vaccine [Concomitant]
     Indication: Immunisation
     Dosage: UNK
     Route: 030
     Dates: start: 20210426, end: 20210426

REACTIONS (1)
  - Femur fracture [Recovered/Resolved]

NARRATIVE: CASE EVENT DATE: 20211120
